FAERS Safety Report 6108506-4 (Version None)
Quarter: 2009Q1

REPORT INFORMATION
  Report Type: 
  Country: None (occurrence: None)
  Receive Date: 20090309
  Receipt Date: 20090225
  Transmission Date: 20090719
  Serious: Yes (Hospitalization)
  Sender: FDA-Public Use
  Company Number: DE-B.I. PHARMACEUTICALS,INC./RIDGEFIELD-2009-DE-00439DE

PATIENT
  Sex: Male
  Weight: 90 kg

DRUGS (5)
  1. SIFROL 0,7 MG [Suspect]
     Indication: PARKINSON'S DISEASE
     Dosage: 2.8MG
     Route: 048
     Dates: start: 20080901, end: 20090101
  2. MADOPAR [Concomitant]
     Indication: PARKINSON'S DISEASE
     Dosage: 150MG
     Route: 048
     Dates: start: 20080101, end: 20090101
  3. AZILECT [Concomitant]
     Indication: PARKINSON'S DISEASE
     Dosage: 1MG
     Route: 048
     Dates: start: 20080101, end: 20090101
  4. MIRTAZAPINE [Concomitant]
     Indication: DEPRESSION
     Dosage: 30MG
     Route: 048
     Dates: start: 20080101, end: 20090101
  5. STALEVO 100 [Concomitant]
     Indication: PARKINSON'S DISEASE

REACTIONS (4)
  - AGGRESSION [None]
  - DRUG INEFFECTIVE [None]
  - GAMBLING [None]
  - IMPULSE-CONTROL DISORDER [None]
